FAERS Safety Report 4415887-6 (Version None)
Quarter: 2004Q3

REPORT INFORMATION
  Report Type: 
  Country: None (occurrence: None)
  Receive Date: 20040805
  Receipt Date: 20040429
  Transmission Date: 20050211
  Serious: No
  Sender: FDA-Public Use
  Company Number: US-GLAXOSMITHKLINE-A0508970A

PATIENT
  Age: 46 Year
  Sex: Male

DRUGS (10)
  1. AVANDAMET [Suspect]
     Dosage: 1TAB PER DAY
     Route: 048
  2. ALTACE [Concomitant]
  3. LIPITOR [Concomitant]
  4. LOPRESSOR [Concomitant]
  5. CARDURA [Concomitant]
  6. ASPIRIN [Concomitant]
  7. FOLIC ACID [Concomitant]
  8. TRICOR [Concomitant]
  9. EFFEXOR [Concomitant]
  10. PLAVIX [Concomitant]

REACTIONS (1)
  - ANAEMIA [None]
